FAERS Safety Report 9686584 (Version 1)
Quarter: 2013Q4

REPORT INFORMATION
  Report Type: Spontaneous
  Country: US (occurrence: US)
  Receive Date: 20131113
  Receipt Date: 20131113
  Transmission Date: 20140711
  Serious: No
  Sender: FDA-Public Use
  Company Number: US-009507513-1311USA002596

PATIENT
  Age: 71 Year
  Sex: Female

DRUGS (7)
  1. JANUVIA [Suspect]
     Indication: BLOOD GLUCOSE ABNORMAL
     Dosage: UNK
     Route: 048
     Dates: end: 201309
  2. LISINOPRIL [Concomitant]
     Route: 048
  3. ZOCOR [Concomitant]
     Route: 048
  4. CARVEDILOL [Concomitant]
  5. TORSEMIDE [Concomitant]
  6. ASPIRIN [Concomitant]
     Route: 048
  7. LEVOTHYROXINE SODIUM [Concomitant]
     Route: 048

REACTIONS (2)
  - Rash [Not Recovered/Not Resolved]
  - Pain [Not Recovered/Not Resolved]
